FAERS Safety Report 6285580-6 (Version None)
Quarter: 2009Q3

REPORT INFORMATION
  Report Type: 
  Country: None (occurrence: None)
  Receive Date: 20090727
  Receipt Date: 20090724
  Transmission Date: 20100115
  Serious: Yes (Other)
  Sender: FDA-Public Use
  Company Number: US-B.I. PHARMACEUTICALS,INC./RIDGEFIELD-2009-BP-08738BP

PATIENT
  Age: 48 Year
  Sex: Male

DRUGS (2)
  1. FLOMAX [Suspect]
  2. NORVASC [Concomitant]

REACTIONS (1)
  - PRIAPISM [None]
